FAERS Safety Report 6826921-8 (Version None)
Quarter: 2010Q3

REPORT INFORMATION
  Report Type: 
  Country: None (occurrence: None)
  Receive Date: 20100709
  Receipt Date: 20100630
  Transmission Date: 20110219
  Serious: Yes (Other)
  Sender: FDA-Public Use
  Company Number: US-ROCHE-713410

PATIENT
  Sex: Female

DRUGS (1)
  1. BONIVA [Suspect]
     Indication: PRODUCT USED FOR UNKNOWN INDICATION
     Dosage: FORM: PILL
     Route: 048
     Dates: start: 20100401, end: 20100501

REACTIONS (4)
  - ARTHRALGIA [None]
  - CHEST DISCOMFORT [None]
  - CONTUSION [None]
  - DIARRHOEA [None]
